FAERS Safety Report 19744248 (Version 1)
Quarter: 2021Q3

REPORT INFORMATION
  Report Type: Spontaneous
  Country: US (occurrence: US)
  Receive Date: 20210820
  Receipt Date: 20210820
  Transmission Date: 20211014
  Serious: No
  Sender: FDA-Public Use
  Company Number: None

PATIENT
  Age: 38 Year
  Sex: Female

DRUGS (2)
  1. WELLBUTRIN 100 XL GENERIC [Suspect]
     Active Substance: BUPROPION HYDROCHLORIDE
     Route: 048
     Dates: start: 2016, end: 2016
  2. WELLBUTRIN 300 XL GENERIC [Suspect]
     Active Substance: BUPROPION HYDROCHLORIDE
     Route: 048
     Dates: start: 2016, end: 2016

REACTIONS (2)
  - Treatment failure [None]
  - Product substitution issue [None]

NARRATIVE: CASE EVENT DATE: 2016
